FAERS Safety Report 9363670 (Version 3)
Quarter: 2013Q3

REPORT INFORMATION
  Report Type: Spontaneous
  Country: FR (occurrence: FR)
  Receive Date: 20130624
  Receipt Date: 20130904
  Transmission Date: 20140515
  Serious: Yes (Hospitalization)
  Sender: FDA-Public Use
  Company Number: FR-JNJFOC-20130607852

PATIENT
  Age: 30 Year
  Sex: Female

DRUGS (2)
  1. XEPLION [Suspect]
     Indication: SCHIZOAFFECTIVE DISORDER
     Route: 030
     Dates: start: 20130208, end: 20130503
  2. DEPAKOTE [Concomitant]
     Route: 065
     Dates: start: 20110523

REACTIONS (1)
  - Bipolar I disorder [Recovering/Resolving]
